FAERS Safety Report 9216397 (Version 1)
Quarter: 2013Q2

REPORT INFORMATION
  Report Type: Spontaneous
  Country: DE (occurrence: None)
  Receive Date: 20130403
  Receipt Date: 20130403
  Transmission Date: 20140414
  Serious: Yes (Other)
  Sender: FDA-Public Use
  Company Number: GER/GER/13/0028840

PATIENT
  Age: 28 Year
  Sex: Female
  Weight: 158 kg

DRUGS (9)
  1. LAMOTRIGINE (LAMOTRIGINE) [Suspect]
     Indication: EPILEPSY
     Dosage: 50 MG, 50-300 MG/DAY, ORAL
     Dates: start: 20080922, end: 20090206
  2. ERGENYL CHRONO [Suspect]
     Indication: EPILEPSY
     Route: 048
     Dates: start: 20080922, end: 20081231
  3. KEPPRA (LEVETIRACETAM) [Suspect]
     Indication: EPILEPSY
     Route: 048
     Dates: start: 20080922, end: 20090213
  4. PHENYDAN [Suspect]
     Indication: EPILEPSY
     Route: 048
     Dates: start: 20080922, end: 20090213
  5. FRISIUM [Suspect]
     Indication: EPILEPSY
     Route: 048
     Dates: start: 20080922, end: 20090213
  6. LUMINAL [Suspect]
     Indication: EPILEPSY
     Route: 048
     Dates: start: 20080922, end: 20090213
  7. TAVOR [Suspect]
     Indication: SLEEP DISORDER
     Route: 048
  8. VIMPAT (LACOSAMIDE) [Concomitant]
  9. THYROXIN (LEVOTHYROXINE SODIUM) [Concomitant]

REACTIONS (4)
  - Weight decreased [None]
  - Abortion induced [None]
  - Foetal disorder [None]
  - Exposure during pregnancy [None]
